FAERS Safety Report 25365990 (Version 1)
Quarter: 2025Q2

REPORT INFORMATION
  Report Type: Spontaneous
  Country: US (occurrence: US)
  Receive Date: 20250528
  Receipt Date: 20250528
  Transmission Date: 20250716
  Serious: Yes (Other)
  Sender: AMGEN
  Company Number: US-AMGEN-USASP2025099900

PATIENT
  Age: 47 Year
  Sex: Female

DRUGS (7)
  1. PREDNISONE [Suspect]
     Active Substance: PREDNISONE
     Indication: Enterocolitis
     Dosage: 2 MILLIGRAM/KILOGRAM, QD
     Route: 065
  2. RISANKIZUMAB [Concomitant]
     Active Substance: RISANKIZUMAB
     Route: 065
  3. RISANKIZUMAB [Concomitant]
     Active Substance: RISANKIZUMAB
     Route: 058
  4. RISANKIZUMAB [Concomitant]
     Active Substance: RISANKIZUMAB
     Route: 040
  5. RISANKIZUMAB [Concomitant]
     Active Substance: RISANKIZUMAB
     Dosage: 180 MILLIGRAM, Q8WK
     Route: 058
  6. RISANKIZUMAB [Concomitant]
     Active Substance: RISANKIZUMAB
     Route: 065
  7. NIVOLUMAB [Concomitant]
     Active Substance: NIVOLUMAB
     Route: 065

REACTIONS (4)
  - Bronchitis [Unknown]
  - Pneumonia [Recovered/Resolved]
  - Therapeutic product effect incomplete [Unknown]
  - Off label use [Unknown]
